FAERS Safety Report 25578040 (Version 1)
Quarter: 2025Q3

REPORT INFORMATION
  Report Type: Spontaneous
  Country: EU (occurrence: EU)
  Receive Date: 20250718
  Receipt Date: 20250718
  Transmission Date: 20251021
  Serious: Yes (Hospitalization, Other)
  Sender: BRISTOL-MYERS SQUIBB COMPANY
  Company Number: None

PATIENT
  Age: 72 Year
  Sex: Female

DRUGS (1)
  1. NIVOLUMAB [Suspect]
     Active Substance: NIVOLUMAB
     Indication: Superficial spreading melanoma stage unspecified
     Route: 042
     Dates: start: 20210218, end: 20220715

REACTIONS (1)
  - Scleroderma overlap syndrome [Not Recovered/Not Resolved]

NARRATIVE: CASE EVENT DATE: 20230715
